FAERS Safety Report 15358707 (Version 7)
Quarter: 2018Q4

REPORT INFORMATION
  Report Type: Report from Study
  Country: None (occurrence: US)
  Receive Date: 20180906
  Receipt Date: 20181218
  Transmission Date: 20190204
  Serious: Yes (Hospitalization)
  Sender: FDA-Public Use
  Company Number: US-ABBVIE-18P-163-2472254-00

PATIENT
  Age: 69 Year
  Sex: Female
  Weight: 75.8 kg

DRUGS (44)
  1. MOXIFLOXACIN. [Concomitant]
     Active Substance: MOXIFLOXACIN
     Indication: CHILLS
  2. POTASSIUM CHLORIDE. [Concomitant]
     Active Substance: POTASSIUM CHLORIDE
     Route: 042
     Dates: start: 20180913, end: 20180913
  3. METOPROLOL. [Concomitant]
     Active Substance: METOPROLOL
     Indication: TACHYCARDIA
     Route: 048
     Dates: start: 20180913, end: 20180913
  4. TRONOLANE CREAM [Concomitant]
     Indication: HAEMORRHOIDS
     Route: 061
     Dates: start: 20180828, end: 20181005
  5. SENNA [Concomitant]
     Active Substance: SENNA LEAF\SENNOSIDES\SENNOSIDES A AND B
     Indication: CONSTIPATION
     Route: 048
     Dates: start: 20180929, end: 20180929
  6. ACETAMINOPHEN. [Concomitant]
     Active Substance: ACETAMINOPHEN
     Indication: PYREXIA
     Route: 048
     Dates: start: 20180828
  7. DIPHENHYDRAMINE. [Concomitant]
     Active Substance: DIPHENHYDRAMINE
     Indication: PREMEDICATION
  8. LORAZEPAM. [Concomitant]
     Active Substance: LORAZEPAM
     Route: 048
     Dates: start: 20180902, end: 20180921
  9. GRANLSETRON [Concomitant]
     Indication: PROPHYLAXIS OF NAUSEA AND VOMITING
     Route: 042
     Dates: start: 20180828, end: 20180828
  10. GRANLSETRON [Concomitant]
     Route: 042
     Dates: start: 20180814, end: 20180820
  11. MIRALAX [Concomitant]
     Active Substance: POLYETHYLENE GLYCOL 3350
     Indication: CONSTIPATION
     Dates: start: 20180916, end: 20180922
  12. CALCIUM CITRATE WITH VITAMIN D3 [Concomitant]
     Indication: MINERAL SUPPLEMENTATION
     Route: 048
     Dates: start: 20180612, end: 20180831
  13. VITAMIN E [Concomitant]
     Active Substance: .ALPHA.-TOCOPHEROL
     Indication: VITAMIN SUPPLEMENTATION
     Route: 048
     Dates: start: 20180524
  14. VITAMIN K2 [Concomitant]
     Active Substance: MENAQUINONE 6
     Indication: VITAMIN SUPPLEMENTATION
     Route: 048
     Dates: start: 20180524
  15. POTASSIUM CHLORIDE. [Concomitant]
     Active Substance: POTASSIUM CHLORIDE
     Indication: HYPOKALAEMIA
     Route: 042
     Dates: start: 20180902, end: 20180903
  16. POTASSIUM CHLORIDE. [Concomitant]
     Active Substance: POTASSIUM CHLORIDE
     Route: 048
     Dates: start: 20180907, end: 20180907
  17. MAGNESIUM SULFATE. [Concomitant]
     Active Substance: MAGNESIUM SULFATE
     Indication: HYPOMAGNESAEMIA
     Route: 042
     Dates: start: 20180913, end: 20180913
  18. XANAX [Concomitant]
     Active Substance: ALPRAZOLAM
     Indication: ANXIETY
     Dosage: 0.5-1 MG
     Route: 048
     Dates: start: 20180814
  19. POTASSIUM CHLORIDE. [Concomitant]
     Active Substance: POTASSIUM CHLORIDE
     Route: 048
     Dates: start: 20180830, end: 20180830
  20. METOPROLOL. [Concomitant]
     Active Substance: METOPROLOL
     Route: 042
     Dates: start: 20180925, end: 20180925
  21. NYSTANTIN [Concomitant]
     Indication: ORAL CANDIDIASIS
     Route: 048
     Dates: start: 20180915, end: 20180922
  22. VENETOCLAX. [Suspect]
     Active Substance: VENETOCLAX
     Indication: MYELODYSPLASTIC SYNDROME
     Route: 048
     Dates: start: 20180612, end: 20180827
  23. FOLIC ACID. [Concomitant]
     Active Substance: FOLIC ACID
     Dosage: 1000 U/G
     Route: 048
     Dates: start: 20180829, end: 20180831
  24. MOXIFLOXACIN. [Concomitant]
     Active Substance: MOXIFLOXACIN
     Indication: RHINORRHOEA
     Route: 050
     Dates: start: 20180808, end: 20180816
  25. DIPHENHYDRAMINE. [Concomitant]
     Active Substance: DIPHENHYDRAMINE
     Indication: TRANSFUSION
     Route: 042
     Dates: start: 20180830
  26. METOPROLOL. [Concomitant]
     Active Substance: METOPROLOL
     Route: 048
     Dates: start: 20180928, end: 20181005
  27. METOPROLOL. [Concomitant]
     Active Substance: METOPROLOL
     Route: 048
     Dates: start: 20180925
  28. AMOXICILLIN CLAVULANATE [Concomitant]
     Active Substance: AMOXICILLIN\CLAVULANIC ACID
     Indication: ANTIBIOTIC PROPHYLAXIS
     Dosage: 875/125 MG
     Route: 048
     Dates: start: 20180524, end: 20180829
  29. VALACYCLOVIR [Concomitant]
     Active Substance: VALACYCLOVIR HYDROCHLORIDE
     Indication: ANTIVIRAL PROPHYLAXIS
     Route: 048
     Dates: start: 20180524, end: 20180830
  30. CYANOCOBALAMIN. [Concomitant]
     Active Substance: CYANOCOBALAMIN
     Indication: FATIGUE
     Route: 048
     Dates: start: 20180524
  31. FOLIC ACID. [Concomitant]
     Active Substance: FOLIC ACID
     Indication: VITAMIN SUPPLEMENTATION
     Dosage: 400 U/G
     Route: 048
     Dates: start: 20180524, end: 20180828
  32. METOPROLOL. [Concomitant]
     Active Substance: METOPROLOL
     Route: 042
     Dates: start: 20180915, end: 20180915
  33. AZACITIDINE. [Suspect]
     Active Substance: AZACITIDINE
     Indication: MYELODYSPLASTIC SYNDROME
     Dosage: ON DAYS 1-7 OF EVERY 28 DAY CYCLE
     Route: 042
     Dates: start: 20180612, end: 20180820
  34. VALACYCLOVIR [Concomitant]
     Active Substance: VALACYCLOVIR HYDROCHLORIDE
     Route: 048
     Dates: start: 20180927, end: 20181005
  35. ASCORBIC ACID. [Concomitant]
     Active Substance: ASCORBIC ACID
     Indication: VITAMIN SUPPLEMENTATION
     Route: 048
     Dates: start: 20180524, end: 20180927
  36. CENTRUM SILVER [Concomitant]
     Active Substance: MINERALS\VITAMINS
     Indication: VITAMIN SUPPLEMENTATION
     Route: 048
     Dates: start: 20180524
  37. ACETAMINOPHEN. [Concomitant]
     Active Substance: ACETAMINOPHEN
     Route: 048
     Dates: start: 20180703
  38. LORAZEPAM. [Concomitant]
     Active Substance: LORAZEPAM
     Indication: ANXIETY
     Route: 048
     Dates: start: 20180831
  39. POTASSIUM CHLORIDE. [Concomitant]
     Active Substance: POTASSIUM CHLORIDE
     Route: 048
     Dates: start: 20180905, end: 20180905
  40. MIRTAZAPINE. [Concomitant]
     Active Substance: MIRTAZAPINE
     Indication: INSOMNIA
     Dosage: HS
     Route: 048
     Dates: start: 20180927, end: 20181005
  41. MULTIVIT-MIN-FA-LYCOPEN-LUTEIN [Concomitant]
     Indication: VITAMIN SUPPLEMENTATION
     Dosage: 0.4-300-250
     Route: 048
     Dates: start: 20180524
  42. MIRALAX [Concomitant]
     Active Substance: POLYETHYLENE GLYCOL 3350
     Indication: SUPPLEMENTATION THERAPY
     Dosage: 1 TABLESPOON
     Route: 048
     Dates: start: 20180615
  43. MOXIFLOXACIN. [Concomitant]
     Active Substance: MOXIFLOXACIN
     Indication: HYPERHIDROSIS
  44. CYANOCOBALAMIN. [Concomitant]
     Active Substance: CYANOCOBALAMIN
     Indication: FATIGUE
     Dosage: 1000 U/G
     Route: 048
     Dates: start: 20180828, end: 20180830

REACTIONS (1)
  - Abdominal abscess [Recovered/Resolved]

NARRATIVE: CASE EVENT DATE: 20180828
